FAERS Safety Report 6447210-X (Version None)
Quarter: 2009Q4

REPORT INFORMATION
  Report Type: 
  Country: None (occurrence: None)
  Receive Date: 20091119
  Receipt Date: 20091113
  Transmission Date: 20100525
  Serious: Yes (Hospitalization)
  Sender: FDA-Public Use
  Company Number: JP-ASTRAZENECA-2009SE24324

PATIENT
  Age: 15192 Day
  Sex: Male
  Weight: 58 kg

DRUGS (8)
  1. CRESTOR [Suspect]
     Indication: TYPE IIA HYPERLIPIDAEMIA
     Route: 048
     Dates: start: 20090701, end: 20090714
  2. CRESTOR [Suspect]
     Route: 048
     Dates: start: 20090715, end: 20090812
  3. TENORMIN [Concomitant]
     Indication: MYOCARDIAL ISCHAEMIA
     Dosage: 50MG + 25MG TABLETS, STARTED BEFORE MAR-2003.
     Route: 048
  4. FRANDOL [Concomitant]
     Indication: MYOCARDIAL ISCHAEMIA
     Dosage: 20 MG, TWO TIMES A DAY, STARTED BEFORE MAR-2003.
     Route: 048
  5. AMLODIN OD [Concomitant]
     Indication: HYPERTENSION
     Dosage: 5 MG, TWO TIMES A DAY, STARTED BEFORE MAR-2003
     Route: 048
  6. CARDENALIN [Concomitant]
     Indication: HYPERTENSION
     Dosage: 2 MG, DAILY, STARTED BEFORE MAR-2003.
     Route: 048
  7. ASPIRIN [Concomitant]
     Indication: MYOCARDIAL ISCHAEMIA
     Route: 048
     Dates: start: 20030903
  8. MICARDIS [Concomitant]
     Indication: HYPERTENSION
     Route: 048
     Dates: start: 20040526

REACTIONS (2)
  - DIARRHOEA [None]
  - RENAL FAILURE ACUTE [None]
